FAERS Safety Report 7683142-7 (Version None)
Quarter: 2011Q3

REPORT INFORMATION
  Report Type: 
  Country: None (occurrence: None)
  Receive Date: 20110815
  Receipt Date: 20110808
  Transmission Date: 20111222
  Serious: Yes (Other)
  Sender: FDA-Public Use
  Company Number: US-CEPHALON-US025084

PATIENT
  Sex: Female

DRUGS (7)
  1. PROVIGIL [Suspect]
     Indication: FATIGUE
     Route: 048
     Dates: start: 20080101, end: 20080101
  2. REBIF [Suspect]
     Indication: MULTIPLE SCLEROSIS
     Route: 058
     Dates: start: 20080204, end: 20080820
  3. LISINOPRIL [Concomitant]
     Indication: HYPERTENSION
  4. CLOZAPINE [Interacting]
     Indication: BIPOLAR DISORDER
     Dates: start: 20020101
  5. ATENOLOL [Concomitant]
     Indication: HYPERTENSION
  6. CLONAZEPAM [Concomitant]
     Indication: HYPERTENSION
  7. XALATAN [Concomitant]
     Indication: DEVELOPMENTAL GLAUCOMA

REACTIONS (5)
  - DELUSION [None]
  - DRUG INTERACTION [None]
  - SUICIDAL BEHAVIOUR [None]
  - INSOMNIA [None]
  - PARANOIA [None]
